FAERS Safety Report 10961173 (Version 1)
Quarter: 2015Q1

REPORT INFORMATION
  Report Type: Report from Study
  Country: BR (occurrence: BR)
  Receive Date: 20150327
  Receipt Date: 20150327
  Transmission Date: 20150721
  Serious: Yes (Hospitalization)
  Sender: FDA-Public Use
  Company Number: BR-SA-2015SA037596

PATIENT
  Sex: Female

DRUGS (2)
  1. NOVORAPID [Concomitant]
     Active Substance: INSULIN ASPART
  2. LANTUS [Suspect]
     Active Substance: INSULIN GLARGINE
     Dosage: 3 ML CARTRIDGE
     Route: 065

REACTIONS (3)
  - Hypoglycaemia [Unknown]
  - Exposure during pregnancy [Unknown]
  - Dehydration [Unknown]

NARRATIVE: CASE EVENT DATE: 201501
